FAERS Safety Report 6282895-2 (Version None)
Quarter: 2009Q3

REPORT INFORMATION
  Report Type: 
  Country: None (occurrence: None)
  Receive Date: 20090722
  Receipt Date: 20090722
  Transmission Date: 20100115
  Serious: Yes (Disabling)
  Sender: FDA-Public Use
  Company Number: None

PATIENT
  Age: 47 Year
  Sex: Female
  Weight: 83.9154 kg

DRUGS (2)
  1. PLAQUENIL [Suspect]
     Indication: CUTANEOUS LUPUS ERYTHEMATOSUS
     Dosage: CAN'T REMEMBER/ 3 YEARS AGO DAILY
     Dates: start: 20060803, end: 20070410
  2. PLAQUENIL [Suspect]
     Indication: SYSTEMIC LUPUS ERYTHEMATOSUS
     Dosage: CAN'T REMEMBER/ 3 YEARS AGO DAILY
     Dates: start: 20060803, end: 20070410

REACTIONS (3)
  - DRUG TOXICITY [None]
  - LICHEN PLANUS [None]
  - PRURITUS [None]
